FAERS Safety Report 7630361-1 (Version None)
Quarter: 2011Q3

REPORT INFORMATION
  Report Type: 
  Country: None (occurrence: None)
  Receive Date: 20110722
  Receipt Date: 20110701
  Transmission Date: 20111222
  Serious: Yes (Hospitalization)
  Sender: FDA-Public Use
  Company Number: US-GLAXOSMITHKLINE-A0809576A

PATIENT
  Age: 78 Year
  Sex: Female
  Weight: 96.4 kg

DRUGS (10)
  1. ASPIRIN [Concomitant]
  2. TOPROL-XL [Concomitant]
  3. ACTOS [Concomitant]
  4. NORVASC [Concomitant]
  5. AVANDIA [Suspect]
     Indication: DIABETES MELLITUS
     Dosage: 4MG PER DAY
     Route: 065
     Dates: start: 20060410
  6. AMARYL [Concomitant]
  7. TYLENOL-500 [Concomitant]
  8. PLAVIX [Concomitant]
  9. BENICAR [Concomitant]
  10. CRESTOR [Concomitant]

REACTIONS (2)
  - MYOCARDIAL INFARCTION [None]
  - CORONARY ARTERY DISEASE [None]
